FAERS Safety Report 5573418-1 (Version None)
Quarter: 2007Q4

REPORT INFORMATION
  Report Type: 
  Country: None (occurrence: None)
  Receive Date: 20071226
  Receipt Date: 20071214
  Transmission Date: 20080405
  Serious: Yes (Hospitalization)
  Sender: FDA-Public Use
  Company Number: US-JNJFOC-20071205318

PATIENT
  Age: 79 Year
  Sex: Female

DRUGS (1)
  1. TRAMADOL HYDROCHLORIDE AND ACETAMINOPHEN [Suspect]
     Indication: PAIN
     Route: 048

REACTIONS (2)
  - CONFUSIONAL STATE [None]
  - FALL [None]
